FAERS Safety Report 23703480 (Version 1)
Quarter: 2024Q2

REPORT INFORMATION
  Report Type: Spontaneous
  Country: US (occurrence: None)
  Receive Date: 20240403
  Receipt Date: 20240403
  Transmission Date: 20240716
  Serious: No
  Sender: FDA-Public Use
  Company Number: None

PATIENT
  Age: 17 Year
  Sex: Female

DRUGS (1)
  1. PROZAC [Suspect]
     Active Substance: FLUOXETINE HYDROCHLORIDE

REACTIONS (3)
  - Suicidal ideation [None]
  - Loss of personal independence in daily activities [None]
  - Therapy interrupted [None]

NARRATIVE: CASE EVENT DATE: 20240315
